FAERS Safety Report 17809667 (Version 2)
Quarter: 2020Q3

REPORT INFORMATION
  Report Type: Spontaneous
  Country: US (occurrence: US)
  Receive Date: 20200520
  Receipt Date: 20200818
  Transmission Date: 20201102
  Serious: No
  Sender: FDA-Public Use
  Company Number: US-TOLMAR, INC.-20US021328

PATIENT
  Sex: Female

DRUGS (1)
  1. ELIGARD [Suspect]
     Active Substance: LEUPROLIDE ACETATE
     Indication: PRODUCT USED FOR UNKNOWN INDICATION
     Route: 065

REACTIONS (5)
  - Wrong technique in product usage process [None]
  - Intercepted product preparation error [None]
  - Occupational exposure to product [Unknown]
  - Syringe issue [None]
  - Device leakage [None]

NARRATIVE: CASE EVENT DATE: 20200512
